FAERS Safety Report 26092850 (Version 1)
Quarter: 2025Q4

REPORT INFORMATION
  Report Type: Spontaneous
  Country: CN (occurrence: CN)
  Receive Date: 20251126
  Receipt Date: 20251126
  Transmission Date: 20260118
  Serious: Yes (Hospitalization)
  Sender: COHERUS
  Company Number: CN-SHANGHAI JUNSHI BIOSCIENCES CO., LTD.-CN2025016582

PATIENT

DRUGS (15)
  1. TORIPALIMAB [Suspect]
     Active Substance: TORIPALIMAB
     Indication: Small cell lung cancer
     Dosage: 240 MG, SINGLE
     Route: 041
     Dates: start: 20250930, end: 20250930
  2. TORIPALIMAB [Suspect]
     Active Substance: TORIPALIMAB
     Dosage: 240 MG, SINGLE
     Route: 041
     Dates: start: 20251021, end: 20251021
  3. TORIPALIMAB [Suspect]
     Active Substance: TORIPALIMAB
     Dosage: 240 MG, CYCLE 3
     Route: 041
     Dates: start: 20251110, end: 20251110
  4. ETOPOSIDE [Suspect]
     Active Substance: ETOPOSIDE
     Indication: Small cell lung cancer
     Dosage: 100 MG, SINGLE
     Route: 041
     Dates: start: 20250930, end: 20251004
  5. ETOPOSIDE [Suspect]
     Active Substance: ETOPOSIDE
     Dosage: 100 MG
     Route: 041
     Dates: start: 20251021, end: 20251025
  6. ETOPOSIDE [Suspect]
     Active Substance: ETOPOSIDE
     Dosage: CYCLE 3
     Route: 041
     Dates: start: 20251110, end: 20251110
  7. CISPLATIN [Suspect]
     Active Substance: CISPLATIN
     Indication: Small cell lung cancer
     Dosage: 40 MG, SINGLE
     Route: 041
     Dates: start: 20250930, end: 20251002
  8. CISPLATIN [Suspect]
     Active Substance: CISPLATIN
     Dosage: 40 MG
     Route: 041
     Dates: start: 20251021, end: 20251023
  9. CISPLATIN [Suspect]
     Active Substance: CISPLATIN
     Dosage: UNK UNK, SINGLE
     Route: 041
     Dates: start: 20251110, end: 20251110
  10. SODIUM CHLORIDE [Concomitant]
     Active Substance: SODIUM CHLORIDE
     Indication: Medication dilution
     Dosage: 100 ML
     Route: 041
     Dates: start: 20250930, end: 20251002
  11. SODIUM CHLORIDE [Concomitant]
     Active Substance: SODIUM CHLORIDE
     Dosage: 100 ML
     Route: 041
     Dates: start: 20251021, end: 20251023
  12. SODIUM CHLORIDE [Concomitant]
     Active Substance: SODIUM CHLORIDE
     Dosage: 100 ML, CYCLE 3
     Route: 041
     Dates: start: 20251110, end: 20251110
  13. SODIUM CHLORIDE [Concomitant]
     Active Substance: SODIUM CHLORIDE
     Indication: Medication dilution
     Dosage: 500 ML
     Route: 041
     Dates: start: 20250930, end: 20251004
  14. SODIUM CHLORIDE [Concomitant]
     Active Substance: SODIUM CHLORIDE
     Dosage: 500 ML
     Route: 041
     Dates: start: 20251021, end: 20251025
  15. SODIUM CHLORIDE [Concomitant]
     Active Substance: SODIUM CHLORIDE
     Dosage: 500 ML, SINGLE
     Route: 041
     Dates: start: 20251110, end: 20251110

REACTIONS (2)
  - Granulocyte count decreased [Unknown]
  - Myelosuppression [Unknown]

NARRATIVE: CASE EVENT DATE: 20251110
